FAERS Safety Report 16806607 (Version 3)
Quarter: 2020Q1

REPORT INFORMATION
  Report Type: Spontaneous
  Country: US (occurrence: US)
  Receive Date: 20190913
  Receipt Date: 20200211
  Transmission Date: 20200409
  Serious: No
  Sender: FDA-Public Use
  Company Number: US-SA-2019SA255465

PATIENT
  Age: 61 Year
  Sex: Female

DRUGS (12)
  1. EUCRISA [Concomitant]
     Active Substance: CRISABOROLE
  2. HYDROXYZINE HYDROCHLORIDE. [Concomitant]
     Active Substance: HYDROXYZINE HYDROCHLORIDE
  3. CLOBETASOL [Concomitant]
     Active Substance: CLOBETASOL
  4. EPICERAM [Concomitant]
     Active Substance: DEVICE
  5. HYDROCORTISONE. [Concomitant]
     Active Substance: HYDROCORTISONE
  6. DUPIXENT [Suspect]
     Active Substance: DUPILUMAB
     Dosage: 300 MG, QOW
     Route: 058
     Dates: start: 201912
  7. BETAMETHASONE DIPROPIONATE. [Concomitant]
     Active Substance: BETAMETHASONE DIPROPIONATE
  8. FLUOCINONIDE. [Concomitant]
     Active Substance: FLUOCINONIDE
  9. DUPIXENT [Suspect]
     Active Substance: DUPILUMAB
     Indication: DERMATITIS ALLERGIC
     Dosage: 300 MG, QOW
     Route: 058
     Dates: start: 20190701, end: 20191023
  10. DESONIDE. [Concomitant]
     Active Substance: DESONIDE
  11. LOCOID [Concomitant]
     Active Substance: HYDROCORTISONE BUTYRATE
     Dosage: UNK
  12. MOTRIN IB [Concomitant]
     Active Substance: IBUPROFEN

REACTIONS (5)
  - Therapeutic response decreased [Unknown]
  - Rash pruritic [Unknown]
  - Oral herpes [Unknown]
  - Rash [Unknown]
  - Skin swelling [Unknown]

NARRATIVE: CASE EVENT DATE: 2019
